FAERS Safety Report 6010195-4 (Version None)
Quarter: 2008Q4

REPORT INFORMATION
  Report Type: 
  Country: None (occurrence: None)
  Receive Date: 20081218
  Receipt Date: 20081110
  Transmission Date: 20090506
  Serious: No
  Sender: FDA-Public Use
  Company Number: A0554508A

PATIENT
  Age: 72 Year
  Sex: Female
  Weight: 70.2 kg

DRUGS (19)
  1. FLONASE [Suspect]
     Dosage: 2SPR PER DAY
     Route: 045
     Dates: end: 20080905
  2. FLUTICASONE PROPIONATE [Suspect]
     Dosage: 1SPR PER DAY
     Route: 045
     Dates: start: 20060101
  3. SODIUM CHLORIDE [Concomitant]
  4. DILTIAZEM [Concomitant]
     Dosage: 240MG PER DAY
  5. LISINOPRIL [Concomitant]
  6. HYDROCHLOROTHIAZIDE [Concomitant]
     Dosage: 20MG PER DAY
  7. CELEBREX [Concomitant]
     Dosage: 200MG PER DAY
  8. TYLENOL (CAPLET) [Concomitant]
  9. LEVOTHYROXINE SODIUM [Concomitant]
     Dosage: 50MCG PER DAY
  10. CLARINEX [Concomitant]
  11. GLUCOSAMINE CHONDROITIN [Concomitant]
  12. OSCAL [Concomitant]
  13. CALTRATE [Concomitant]
  14. CENTRUM SILVER [Concomitant]
  15. ASPIRIN [Concomitant]
  16. CARTIA XT [Concomitant]
  17. SODIUM CHLORIDE [Concomitant]
     Route: 045
  18. OMEPRAZOLE [Concomitant]
     Dosage: 20MG PER DAY
  19. LORAZEPAM [Concomitant]
     Dosage: .5MG AS REQUIRED

REACTIONS (4)
  - DERMATITIS [None]
  - EPISTAXIS [None]
  - NASAL ULCER [None]
  - SEBORRHOEIC DERMATITIS [None]
